FAERS Safety Report 19245407 (Version 6)
Quarter: 2022Q2

REPORT INFORMATION
  Report Type: Report from Study
  Country: CA (occurrence: CA)
  Receive Date: 20210511
  Receipt Date: 20220411
  Transmission Date: 20220721
  Serious: No
  Sender: FDA-Public Use
  Company Number: CA-JNJFOC-20210459521

PATIENT
  Age: 49 Year
  Sex: Female
  Weight: 92 kg

DRUGS (3)
  1. SIMPONI [Suspect]
     Active Substance: GOLIMUMAB
     Indication: Colitis ulcerative
     Dosage: STRENGTH: 100 MG/ML
     Route: 058
     Dates: start: 20171222
  2. SIMPONI [Suspect]
     Active Substance: GOLIMUMAB
     Route: 058
  3. SIMPONI [Suspect]
     Active Substance: GOLIMUMAB
     Route: 058
     Dates: start: 20171222

REACTIONS (12)
  - Injection site pain [Recovered/Resolved]
  - Incorrect dose administered [Unknown]
  - Product storage error [Unknown]
  - Device deployment issue [Unknown]
  - Injection site swelling [Recovered/Resolved]
  - Injection site erythema [Recovered/Resolved]
  - Injection site warmth [Recovered/Resolved]
  - Injection site pruritus [Recovered/Resolved]
  - Eating disorder [Unknown]
  - Faecal calprotectin abnormal [Unknown]
  - Abdominal pain [Recovering/Resolving]
  - Inappropriate schedule of product administration [Unknown]

NARRATIVE: CASE EVENT DATE: 20210101
